FAERS Safety Report 14950174 (Version 2)
Quarter: 2018Q3

REPORT INFORMATION
  Report Type: Spontaneous
  Country: GB (occurrence: GB)
  Receive Date: 20180530
  Receipt Date: 20180709
  Transmission Date: 20181010
  Serious: Yes (Congenital Anomaly, Other)
  Sender: FDA-Public Use
  Company Number: GB-BIOGEN-2018BI00587066

PATIENT
  Age: 0 Day
  Sex: Female
  Weight: .6 kg

DRUGS (1)
  1. AVONEX [Suspect]
     Active Substance: INTERFERON BETA-1A
     Indication: MATERNAL EXPOSURE TIMING UNSPECIFIED
     Route: 064
     Dates: start: 20150925, end: 20170803

REACTIONS (5)
  - Hydrocephalus [Unknown]
  - Foetal exposure during pregnancy [Recovered/Resolved]
  - Haemangioma [Unknown]
  - Lung disorder [Unknown]
  - Premature baby [Recovered/Resolved]

NARRATIVE: CASE EVENT DATE: 20171205
